FAERS Safety Report 8187626-7 (Version None)
Quarter: 2012Q1

REPORT INFORMATION
  Report Type: 
  Country: None (occurrence: None)
  Receive Date: 20120306
  Receipt Date: 20120301
  Transmission Date: 20120608
  Serious: Yes (Hospitalization)
  Sender: FDA-Public Use
  Company Number: IT-TEVA-325665ISR

PATIENT
  Sex: Male

DRUGS (3)
  1. FLUOROURACIL [Suspect]
     Indication: COLON CANCER
     Dosage: 2800 MILLIGRAM;
     Route: 042
     Dates: start: 20110323, end: 20110504
  2. IRINOTECAN KABI [Suspect]
     Indication: COLON CANCER
     Dosage: 300 MILLIGRAM;
     Route: 042
     Dates: start: 20110323, end: 20110504
  3. LEVOLEUCOVORIN CALCIUM [Concomitant]
     Dosage: 175 MILLIGRAM;
     Route: 042
     Dates: start: 20110323, end: 20110504

REACTIONS (3)
  - BLOOD CREATININE INCREASED [None]
  - DEHYDRATION [None]
  - DIARRHOEA [None]
